FAERS Safety Report 24960600 (Version 1)
Quarter: 2025Q1

REPORT INFORMATION
  Report Type: Spontaneous
  Country: NL (occurrence: NL)
  Receive Date: 20250212
  Receipt Date: 20250212
  Transmission Date: 20250409
  Serious: Yes (Other)
  Sender: PERRIGO
  Company Number: NL-RBHC-20-25-NLD-RB-0000865

PATIENT
  Age: 75 Year
  Sex: Male

DRUGS (3)
  1. IBUPROFEN [Suspect]
     Active Substance: IBUPROFEN
     Indication: Pericardial effusion
     Route: 065
  2. IBUPROFEN [Suspect]
     Active Substance: IBUPROFEN
     Indication: Pericarditis
  3. COLCHICINE [Suspect]
     Active Substance: COLCHICINE
     Indication: Product used for unknown indication
     Route: 065

REACTIONS (12)
  - Cardiogenic shock [Unknown]
  - Pericardial mesothelioma malignant [Unknown]
  - Right ventricular failure [Unknown]
  - Pericarditis constrictive [Unknown]
  - Pericardial fibrosis [Unknown]
  - Mesothelioma malignant [Unknown]
  - Pericarditis adhesive [Unknown]
  - Right ventricular dysfunction [Unknown]
  - Ventricular dyskinesia [Unknown]
  - Pericardial cyst [Unknown]
  - Adhesion [Unknown]
  - Drug ineffective for unapproved indication [Not Recovered/Not Resolved]
